FAERS Safety Report 4520157-1 (Version None)
Quarter: 2004Q4

REPORT INFORMATION
  Report Type: 
  Country: None (occurrence: None)
  Receive Date: 20041029
  Receipt Date: 20040719
  Transmission Date: 20050328
  Serious: No
  Sender: FDA-Public Use
  Company Number: 2004-119586-NL

PATIENT
  Age: 24 Year
  Sex: Female

DRUGS (8)
  1. NUVARING [Suspect]
     Indication: CONTRACEPTION
     Dosage: DF DAILY, VAGINAL
     Route: 067
     Dates: start: 20030801
  2. NUVARING [Suspect]
     Indication: DYSMENORRHOEA
     Dosage: DF DAILY, VAGINAL
     Route: 067
     Dates: start: 20030801
  3. NUVARING [Suspect]
     Indication: HYPOMENORRHOEA
     Dosage: DF DAILY, VAGINAL
     Route: 067
     Dates: start: 20030801
  4. ALLEGRA [Concomitant]
  5. FLEXORIL [Concomitant]
  6. BEXTRA [Concomitant]
  7. NEURONTIN [Concomitant]
  8. DARVOCET-N 100 [Concomitant]

REACTIONS (1)
  - INTRA-UTERINE CONTRACEPTIVE DEVICE EXPELLED [None]
